FAERS Safety Report 15603689 (Version 2)
Quarter: 2018Q4

REPORT INFORMATION
  Report Type: Spontaneous
  Country: SA (occurrence: SA)
  Receive Date: 20181109
  Receipt Date: 20181126
  Transmission Date: 20190205
  Serious: Yes (Death, Hospitalization, Other)
  Sender: FDA-Public Use
  Company Number: SA-PFIZER INC-2018452184

PATIENT
  Age: 49 Year
  Sex: Female

DRUGS (3)
  1. DOXORUBICIN HCL [Suspect]
     Active Substance: DOXORUBICIN HYDROCHLORIDE
     Indication: SQUAMOUS CELL BREAST CARCINOMA
     Dosage: 50 MG/M2, CYCLIC (X 4 RECYCLE/21DAYS)
  2. TAXOTERE [Suspect]
     Active Substance: DOCETAXEL
     Indication: SQUAMOUS CELL BREAST CARCINOMA
     Dosage: 75 MG/M2, CYCLIC(X 4 RECYCLE/21DAYS)
  3. ENDOXAN [Suspect]
     Active Substance: CYCLOPHOSPHAMIDE
     Indication: SQUAMOUS CELL BREAST CARCINOMA
     Dosage: 600 MG/M2, CYCLIC (X 4 RECYCLE/21DAYS)

REACTIONS (5)
  - Haematotoxicity [Recovered/Resolved]
  - Neuropathy peripheral [Recovered/Resolved]
  - Mucosal inflammation [Recovered/Resolved]
  - Febrile neutropenia [Recovered/Resolved]
  - Fatigue [Recovered/Resolved]
